FAERS Safety Report 5323573-3 (Version None)
Quarter: 2007Q2

REPORT INFORMATION
  Report Type: 
  Country: None (occurrence: None)
  Receive Date: 20070509
  Receipt Date: 20070509
  Transmission Date: 20071010
  Serious: Yes (Other)
  Sender: FDA-Public Use
  Company Number: None

PATIENT
  Age: 9 Year
  Sex: Male
  Weight: 32.659 kg

DRUGS (2)
  1. FEXOFENADINE [Suspect]
     Indication: ASTHMA
     Dosage: 60MG BID
     Dates: start: 20051201, end: 20051207
  2. FEXOFENADINE [Suspect]
     Indication: RHINITIS
     Dosage: 60MG BID
     Dates: start: 20051201, end: 20051207

REACTIONS (5)
  - AGITATION [None]
  - DISTURBANCE IN ATTENTION [None]
  - DRUG INTOLERANCE [None]
  - PHARMACEUTICAL PRODUCT COMPLAINT [None]
  - THERAPEUTIC RESPONSE UNEXPECTED WITH DRUG SUBSTITUTION [None]
